FAERS Safety Report 23247738 (Version 1)
Quarter: 2023Q4

REPORT INFORMATION
  Report Type: Spontaneous
  Country: US (occurrence: US)
  Receive Date: 20231130
  Receipt Date: 20231130
  Transmission Date: 20240109
  Serious: No
  Sender: FDA-Public Use
  Company Number: US-PFIZER INC-202300391848

PATIENT
  Age: 43 Year
  Sex: Female

DRUGS (3)
  1. XELJANZ XR [Suspect]
     Active Substance: TOFACITINIB CITRATE
     Dosage: 1 DF, 1X/DAY
  2. LISINOPRIL [Concomitant]
     Active Substance: LISINOPRIL
  3. FISH OIL [Concomitant]
     Active Substance: FISH OIL

REACTIONS (1)
  - Drug ineffective [Unknown]
